FAERS Safety Report 16763245 (Version 2)
Quarter: 2020Q2

REPORT INFORMATION
  Report Type: Spontaneous
  Country: IN (occurrence: IN)
  Receive Date: 20190902
  Receipt Date: 20200527
  Transmission Date: 20200713
  Serious: Yes (Other)
  Sender: FDA-Public Use
  Company Number: IN-AMGEN-INDSP2019138702

PATIENT

DRUGS (2)
  1. XGEVA [Suspect]
     Active Substance: DENOSUMAB
     Indication: BONE GIANT CELL TUMOUR
     Dosage: 120 MILLIGRAM, Q4WK (ADDITIONAL LOADING DOSES ON D 8 AND 15 OF THE FIRST MONTH)
     Route: 058
  2. XGEVA [Suspect]
     Active Substance: DENOSUMAB
     Indication: METASTASES TO LUNG

REACTIONS (7)
  - Tetany [Unknown]
  - Therapeutic product effect incomplete [Unknown]
  - Hypocalcaemia [Unknown]
  - Bone giant cell tumour [Unknown]
  - Fatigue [Recovering/Resolving]
  - Malignant transformation [Unknown]
  - Disease complication [Unknown]
